FAERS Safety Report 9028714 (Version 1)
Quarter: 2013Q1

REPORT INFORMATION
  Report Type: Report from Study
  Country: US (occurrence: US)
  Receive Date: 20130124
  Receipt Date: 20130124
  Transmission Date: 20140127
  Serious: Yes (Hospitalization)
  Sender: FDA-Public Use
  Company Number: US-ABBOTT-13P-163-1037372-00

PATIENT
  Sex: Female
  Weight: 65.38 kg

DRUGS (6)
  1. HUMIRA [Suspect]
     Indication: PSORIASIS
     Dates: start: 2005, end: 201208
  2. ULTRAM [Concomitant]
     Indication: FIBROMYALGIA
  3. RELEFAN [Concomitant]
     Indication: GASTROOESOPHAGEAL REFLUX DISEASE
  4. COREG [Concomitant]
     Indication: CARDIAC FAILURE CONGESTIVE
  5. SPIRONOLACTONE [Concomitant]
     Indication: PRODUCT USED FOR UNKNOWN INDICATION
  6. DIGOXIN [Concomitant]
     Indication: CARDIAC FAILURE CONGESTIVE

REACTIONS (10)
  - Ovarian cyst [Recovered/Resolved]
  - Pancreatitis [Recovered/Resolved]
  - Cardiac arrest [Recovered/Resolved]
  - Pneumonia [Recovered/Resolved]
  - Cellulitis [Not Recovered/Not Resolved]
  - Skin wound [Not Recovered/Not Resolved]
  - Acne [Not Recovered/Not Resolved]
  - Pain [Not Recovered/Not Resolved]
  - Rash [Not Recovered/Not Resolved]
  - Pancreatolithiasis [Recovered/Resolved]
